FAERS Safety Report 4842250-6 (Version None)
Quarter: 2005Q4

REPORT INFORMATION
  Report Type: 
  Country: None (occurrence: None)
  Receive Date: 20051129
  Receipt Date: 20051115
  Transmission Date: 20060501
  Serious: Yes (Death, Hospitalization)
  Sender: FDA-Public Use
  Company Number: USA0511112842

PATIENT
  Sex: Female

DRUGS (1)
  1. ZYPREXA [Suspect]

REACTIONS (5)
  - DEMENTIA [None]
  - DISEASE PROGRESSION [None]
  - FALL [None]
  - HIP FRACTURE [None]
  - PNEUMONIA [None]
